FAERS Safety Report 9615998 (Version 1)
Quarter: 2013Q4

REPORT INFORMATION
  Report Type: Spontaneous
  Country: US (occurrence: US)
  Receive Date: 20131011
  Receipt Date: 20131011
  Transmission Date: 20140711
  Serious: No
  Sender: FDA-Public Use
  Company Number: US-BAYER-2013-123050

PATIENT
  Age: 20 Year
  Sex: Female

DRUGS (2)
  1. MIDOL EXTENDED RELIEF CAPLET [Suspect]
     Indication: HEADACHE
  2. MIDOL EXTENDED RELIEF CAPLET [Suspect]
     Indication: MUSCLE SPASMS

REACTIONS (1)
  - Drug ineffective [None]
